FAERS Safety Report 8610016-7 (Version None)
Quarter: 2012Q3

REPORT INFORMATION
  Report Type: 
  Country: None (occurrence: None)
  Receive Date: 20120822
  Receipt Date: 20120719
  Transmission Date: 20120928
  Serious: Yes (Hospitalization, Other)
  Sender: FDA-Public Use
  Company Number: JP-009507513-1208JPN002533

PATIENT

DRUGS (15)
  1. REBETOL [Suspect]
     Indication: HEPATITIS C
     Dosage: 600 MG, ONCE
     Route: 048
     Dates: start: 20120515, end: 20120612
  2. FAMOTIDINE [Suspect]
     Indication: PROPHYLAXIS
     Dosage: 20 MG, QD
  3. PANTHENOL [Suspect]
     Indication: PROPHYLAXIS
     Dosage: 500 MG, QD
     Dates: start: 20120703, end: 20120704
  4. REBETOL [Suspect]
     Dosage: 600 MG, ONCE
     Route: 048
     Dates: start: 20120515, end: 20120612
  5. TELAVIC [Suspect]
     Route: 048
     Dates: start: 20120515, end: 20120702
  6. URSO 250 [Concomitant]
     Dosage: 600 MG, UNK
     Dates: end: 20120702
  7. REBETOL [Suspect]
     Dosage: 200 MG, ONCE
     Route: 048
     Dates: start: 20120613, end: 20120626
  8. BIO THREE [Concomitant]
     Route: 048
     Dates: start: 20120522
  9. PEG-INTRON [Suspect]
     Dosage: 50MCG/KG/WEEK
     Route: 058
     Dates: start: 20120606, end: 20120702
  10. PEG-INTRON [Suspect]
     Indication: HEPATITIS C
     Dosage: 1.2MCG/KG
     Route: 058
     Dates: start: 20120515
  11. TELAVIC [Suspect]
     Indication: HEPATITIS C
     Dosage: 1500 MG, ONCE
     Route: 048
     Dates: start: 20120515, end: 20120702
  12. PROCTOSEDYL (DIBUCAINE HYDROCHLORIDE (+) FRAMYCETIN SULFATE (+) HYDROC [Concomitant]
     Route: 061
  13. URSO 250 [Concomitant]
     Indication: HEPATITIS C
     Dosage: 450 MG, ONCE
     Route: 048
  14. PEG-INTRON [Suspect]
     Dosage: 1.2MCG/KG/WEEK
     Route: 058
     Dates: start: 20120515, end: 20120529
  15. REBETOL [Suspect]
     Dosage: 400 MG, ONCE
     Route: 048
     Dates: start: 20120627, end: 20120702

REACTIONS (5)
  - HAEMATURIA [None]
  - BLADDER TAMPONADE [None]
  - DEPRESSIVE SYMPTOM [None]
  - DIARRHOEA [None]
  - URINARY BLADDER HAEMORRHAGE [None]
